FAERS Safety Report 9157275 (Version 2)
Quarter: 2013Q2

REPORT INFORMATION
  Report Type: Report from Study
  Country: BR (occurrence: BR)
  Receive Date: 20130312
  Receipt Date: 20130520
  Transmission Date: 20140414
  Serious: Yes (Death)
  Sender: FDA-Public Use
  Company Number: BR-BRISTOL-MYERS SQUIBB COMPANY-17449281

PATIENT
  Age: 71 Year
  Sex: Male

DRUGS (1)
  1. IPILIMUMAB [Suspect]
     Indication: MALIGNANT MELANOMA
     Dosage: 13APR12-25MAY12:230MG?30JAN13-20FEB13:224MG
     Route: 042
     Dates: start: 20120413, end: 20130220

REACTIONS (1)
  - Malignant neoplasm progression [Fatal]
